FAERS Safety Report 4748975-5 (Version None)
Quarter: 2005Q3

REPORT INFORMATION
  Report Type: 
  Country: None (occurrence: None)
  Receive Date: 20050819
  Receipt Date: 20050628
  Transmission Date: 20060218
  Serious: Yes (Hospitalization)
  Sender: FDA-Public Use
  Company Number: FRWYE781728JUN05

PATIENT
  Age: 52 Year
  Sex: Female

DRUGS (2)
  1. ENBREL [Suspect]
     Indication: RHEUMATOID ARTHRITIS
     Route: 058
     Dates: start: 20050425, end: 20050516
  2. DI-ANTALVIC [Concomitant]
     Dosage: UNKNOWN
     Route: 048

REACTIONS (7)
  - ERYTHEMA [None]
  - HEPATIC STEATOSIS [None]
  - HYPERTHERMIA MALIGNANT [None]
  - INJECTION SITE PAIN [None]
  - MYALGIA [None]
  - PRURITUS [None]
  - SPLENOMEGALY [None]
